FAERS Safety Report 19995277 (Version 3)
Quarter: 2021Q4

REPORT INFORMATION
  Report Type: Report from Study
  Country: RU (occurrence: RU)
  Receive Date: 20211026
  Receipt Date: 20211221
  Transmission Date: 20220303
  Serious: Yes (Hospitalization)
  Sender: FDA-Public Use
  Company Number: RU-CELGENE-RUS-20211004728

PATIENT
  Age: 54 Year
  Sex: Male
  Weight: 87 kg

DRUGS (40)
  1. OZANIMOD [Suspect]
     Active Substance: OZANIMOD
     Indication: Colitis ulcerative
     Route: 048
     Dates: start: 20180615, end: 20180719
  2. OZANIMOD [Suspect]
     Active Substance: OZANIMOD
     Route: 048
     Dates: start: 20180719, end: 20180829
  3. OZANIMOD [Suspect]
     Active Substance: OZANIMOD
     Route: 048
     Dates: start: 20180829, end: 20181009
  4. OZANIMOD [Suspect]
     Active Substance: OZANIMOD
     Route: 048
     Dates: start: 20181009, end: 20181115
  5. OZANIMOD [Suspect]
     Active Substance: OZANIMOD
     Route: 048
     Dates: start: 20181115, end: 20190207
  6. OZANIMOD [Suspect]
     Active Substance: OZANIMOD
     Route: 048
     Dates: start: 20190207, end: 20190506
  7. OZANIMOD [Suspect]
     Active Substance: OZANIMOD
     Route: 048
     Dates: start: 20190506, end: 20190725
  8. OZANIMOD [Suspect]
     Active Substance: OZANIMOD
     Route: 048
     Dates: start: 20190725, end: 20191017
  9. OZANIMOD [Suspect]
     Active Substance: OZANIMOD
     Route: 048
     Dates: start: 20191017, end: 20200123
  10. OZANIMOD [Suspect]
     Active Substance: OZANIMOD
     Route: 048
     Dates: start: 20200123, end: 20200402
  11. OZANIMOD [Suspect]
     Active Substance: OZANIMOD
     Route: 048
     Dates: start: 20200402, end: 20200625
  12. OZANIMOD [Suspect]
     Active Substance: OZANIMOD
     Route: 048
     Dates: start: 20200625, end: 20200917
  13. OZANIMOD [Suspect]
     Active Substance: OZANIMOD
     Route: 048
     Dates: start: 20200917, end: 20201210
  14. OZANIMOD [Suspect]
     Active Substance: OZANIMOD
     Route: 048
     Dates: start: 20201210, end: 20210305
  15. OZANIMOD [Suspect]
     Active Substance: OZANIMOD
     Route: 048
     Dates: start: 20210305, end: 20210527
  16. OZANIMOD [Suspect]
     Active Substance: OZANIMOD
     Route: 048
     Dates: start: 20210527, end: 20210819
  17. OZANIMOD [Suspect]
     Active Substance: OZANIMOD
     Route: 048
     Dates: start: 20210819, end: 20211111
  18. OZANIMOD [Suspect]
     Active Substance: OZANIMOD
     Route: 048
     Dates: start: 20211111
  19. MESALAMINE [Concomitant]
     Active Substance: MESALAMINE
     Indication: Colitis ulcerative
     Route: 048
     Dates: start: 20171215
  20. BUDESONIDE [Concomitant]
     Active Substance: BUDESONIDE
     Indication: Colitis ulcerative
     Route: 048
     Dates: start: 20171220, end: 20180617
  21. BUDESONIDE [Concomitant]
     Active Substance: BUDESONIDE
     Route: 048
     Dates: start: 20180618, end: 20180619
  22. BUDESONIDE [Concomitant]
     Active Substance: BUDESONIDE
     Route: 048
     Dates: start: 20180620, end: 20180621
  23. CAPTOPRIL [Concomitant]
     Active Substance: CAPTOPRIL
     Indication: Hypertension
     Dosage: 25 MILLIGRAM
     Route: 048
     Dates: start: 20171220, end: 20180617
  24. TELMISARTAN [Concomitant]
     Active Substance: TELMISARTAN
     Indication: Hypertension
     Dosage: 80 MILLIGRAM
     Route: 048
     Dates: start: 20181020
  25. POLYETHYLENE GLYCOLS [Concomitant]
     Active Substance: POLYETHYLENE GLYCOLS
     Indication: Endoscopy
     Dosage: 256 GRAM
     Route: 048
     Dates: start: 20190505, end: 20190505
  26. POLYETHYLENE GLYCOLS [Concomitant]
     Active Substance: POLYETHYLENE GLYCOLS
     Indication: Colonoscopy
     Dosage: 256 GRAM
     Route: 048
     Dates: start: 20210304, end: 20210304
  27. INGAVIRIN [Concomitant]
     Active Substance: INGAVIRIN
     Indication: Respiratory tract infection
     Dosage: 90 MILLIGRAM
     Route: 048
     Dates: start: 20201202, end: 20201208
  28. GRIPPFERON [Concomitant]
     Indication: Respiratory tract infection
     Dosage: 500 MILLIGRAM
     Route: 048
     Dates: start: 20201202, end: 20201207
  29. KETOROLAC [Concomitant]
     Active Substance: KETOROLAC TROMETHAMINE
     Indication: Endoscopy
     Dosage: 60 MILLIGRAM
     Route: 041
     Dates: start: 20200402, end: 20200402
  30. KETOROLAC [Concomitant]
     Active Substance: KETOROLAC TROMETHAMINE
     Indication: Colonoscopy
     Dosage: 30 MILLIGRAM
     Route: 041
     Dates: start: 20210305, end: 20210305
  31. Solution sodium chloride [Concomitant]
     Indication: Detoxification
     Dosage: 1000 MILLIGRAM
     Route: 041
     Dates: start: 20200402, end: 20200402
  32. ATROPINE [Concomitant]
     Active Substance: ATROPINE
     Indication: Endoscopy
     Dosage: .5 MILLIGRAM
     Route: 041
     Dates: start: 20200402, end: 20200402
  33. ATROPINE [Concomitant]
     Active Substance: ATROPINE
     Indication: Colonoscopy
     Dosage: .7 MILLIGRAM
     Route: 041
     Dates: start: 20210305, end: 20210305
  34. CHLOROPYRAMINE [Concomitant]
     Active Substance: CHLOROPYRAMINE
     Indication: Endoscopy
     Dosage: 20 MILLIGRAM
     Route: 041
     Dates: start: 20200402, end: 20200402
  35. PROPOFOL [Concomitant]
     Active Substance: PROPOFOL
     Indication: Anaesthesia
     Dosage: 600 MILLIGRAM
     Route: 041
     Dates: start: 20190506, end: 20190506
  36. PROPOFOL [Concomitant]
     Active Substance: PROPOFOL
     Dosage: 350 MILLIGRAM
     Route: 041
     Dates: start: 20210305, end: 20210305
  37. OMEPRAZOLE [Concomitant]
     Active Substance: OMEPRAZOLE
     Indication: Calculus urinary
     Dosage: 20 MILLIGRAM
     Route: 041
     Dates: start: 20190616, end: 20190620
  38. LACTOBACILLUS ACIDOPHILUS [Concomitant]
     Active Substance: LACTOBACILLUS ACIDOPHILUS
     Indication: Calculus urinary
     Dosage: 20 MILLIGRAM
     Route: 041
     Dates: start: 20190616, end: 20190620
  39. CEFTRIAXONE [Concomitant]
     Active Substance: CEFTRIAXONE
     Indication: Calculus urinary
     Route: 030
     Dates: start: 20190616, end: 20190620
  40. ELZEPAM [Concomitant]
     Indication: Colonoscopy
     Dosage: 1 MILLIGRAM
     Route: 041
     Dates: start: 20210305, end: 20210305

REACTIONS (1)
  - COVID-19 pneumonia [Recovered/Resolved]

NARRATIVE: CASE EVENT DATE: 20211005
